FAERS Safety Report 9270552 (Version 1)
Quarter: 2013Q2

REPORT INFORMATION
  Report Type: Spontaneous
  Country: FR (occurrence: FR)
  Receive Date: 20130503
  Receipt Date: 20130503
  Transmission Date: 20140414
  Serious: Yes (Other)
  Sender: FDA-Public Use
  Company Number: PHHY2013FR041602

PATIENT
  Age: 24 Year
  Sex: Female

DRUGS (1)
  1. METOPROLOL [Suspect]
     Indication: SUPRAVENTRICULAR TACHYARRHYTHMIA
     Dosage: 2.5 MG, DAILY

REACTIONS (2)
  - Premature delivery [Unknown]
  - Maternal exposure during pregnancy [Unknown]
